FAERS Safety Report 16620107 (Version 1)
Quarter: 2019Q3

REPORT INFORMATION
  Report Type: Spontaneous
  Country: US (occurrence: US)
  Receive Date: 20190723
  Receipt Date: 20190723
  Transmission Date: 20191004
  Serious: No
  Sender: FDA-Public Use
  Company Number: US-IGSA-SR10007713

PATIENT
  Age: 54 Year
  Sex: Female
  Weight: 53 kg

DRUGS (7)
  1. GAMUNEX-C [Suspect]
     Active Substance: HUMAN IMMUNOGLOBULIN G
     Indication: DERMATOMYOSITIS
     Dosage: 800 ML, Q.M.T.
     Route: 042
     Dates: start: 20181018, end: 20181021
  2. ESTROGENS [Concomitant]
     Active Substance: ESTROGENS
  3. HORMONES [Concomitant]
     Active Substance: UNSPECIFIED INGREDIENT
  4. VITAMINS                           /00067501/ [Concomitant]
     Active Substance: VITAMINS
  5. DECADRON [Concomitant]
     Active Substance: DEXAMETHASONE
     Indication: PREMEDICATION
  6. XANAX [Concomitant]
     Active Substance: ALPRAZOLAM
     Dosage: UNK UNK, PRN
  7. CALCIUM [Concomitant]
     Active Substance: CALCIUM

REACTIONS (3)
  - Dizziness [Recovered/Resolved]
  - Migraine [Recovered/Resolved]
  - Headache [Recovered/Resolved]

NARRATIVE: CASE EVENT DATE: 201801
